FAERS Safety Report 10273176 (Version 1)
Quarter: 2014Q2

REPORT INFORMATION
  Report Type: Spontaneous
  Country: US (occurrence: None)
  Receive Date: 20140630
  Receipt Date: 20140630
  Transmission Date: 20141212
  Serious: Yes (Hospitalization)
  Sender: FDA-Public Use
  Company Number: UNT-2014-002032

PATIENT
  Age: 56 Year
  Sex: Female
  Weight: 94.3 kg

DRUGS (2)
  1. TYVASO [Suspect]
     Indication: COR PULMONALE CHRONIC
     Dosage: 18-54 MICROGRAMS (3 TO 9 BREATHS), QID INHALATION
     Route: 055
     Dates: start: 20140421
  2. ADCIRCA (TADALAFIL) [Concomitant]

REACTIONS (4)
  - Liver disorder [None]
  - Renal failure acute [None]
  - Dialysis [None]
  - Fluid retention [None]
